FAERS Safety Report 15650814 (Version 1)
Quarter: 2018Q4

REPORT INFORMATION
  Report Type: Spontaneous
  Country: US (occurrence: US)
  Receive Date: 20181123
  Receipt Date: 20181123
  Transmission Date: 20190205
  Serious: No
  Sender: FDA-Public Use
  Company Number: US-ASTRAZENECA-2018SF42826

PATIENT
  Sex: Female

DRUGS (1)
  1. FARXIGA [Suspect]
     Active Substance: DAPAGLIFLOZIN PROPANEDIOL
     Route: 048

REACTIONS (6)
  - Heart rate increased [Unknown]
  - Sleep disorder due to general medical condition, insomnia type [Unknown]
  - Fungal infection [Unknown]
  - Oropharyngeal pain [Unknown]
  - Renal impairment [Unknown]
  - Blood glucose increased [Unknown]
